FAERS Safety Report 5636104-5 (Version None)
Quarter: 2008Q1

REPORT INFORMATION
  Report Type: 
  Country: None (occurrence: None)
  Receive Date: 20080225
  Receipt Date: 20080214
  Transmission Date: 20080703
  Serious: Yes (Other)
  Sender: FDA-Public Use
  Company Number: US-JNJFOC-20080204230

PATIENT
  Sex: Female
  Weight: 87.54 kg

DRUGS (11)
  1. DURAGESIC-100 [Suspect]
     Indication: PAIN
     Route: 062
  2. SYNTHROID [Concomitant]
     Indication: THYROID DISORDER
     Route: 048
  3. ATENOLOL [Concomitant]
     Route: 048
  4. HYDROCHLOROTHIAZIDE [Concomitant]
     Indication: DIURETIC THERAPY
     Route: 048
  5. OMEPRAZOLE [Concomitant]
     Indication: GASTROOESOPHAGEAL REFLUX DISEASE
     Route: 048
  6. ASPIRIN [Concomitant]
     Route: 048
  7. CLARINEX [Concomitant]
     Indication: HYPERSENSITIVITY
     Route: 048
  8. FLUOXETINE HCL [Concomitant]
     Indication: DEPRESSION
     Route: 048
  9. ZETIA [Concomitant]
     Indication: BLOOD CHOLESTEROL
     Route: 048
  10. ZOMETA [Concomitant]
     Indication: BREAST CANCER
     Route: 042
  11. FEMARA [Concomitant]
     Indication: BREAST CANCER
     Route: 048

REACTIONS (6)
  - BREAKTHROUGH PAIN [None]
  - DIPLOPIA [None]
  - DIZZINESS [None]
  - INSOMNIA [None]
  - NAUSEA [None]
  - PHOTOPSIA [None]
